FAERS Safety Report 10911860 (Version 1)
Quarter: 2015Q1

REPORT INFORMATION
  Report Type: Spontaneous
  Country: US (occurrence: None)
  Receive Date: 20150309
  Receipt Date: 20150309
  Transmission Date: 20150721
  Serious: No
  Sender: FDA-Public Use
  Company Number: None

PATIENT
  Age: 74 Year
  Sex: Female

DRUGS (12)
  1. AMPYRA [Concomitant]
     Active Substance: DALFAMPRIDINE
  2. ANASTROZOLE. [Concomitant]
     Active Substance: ANASTROZOLE
  3. AMPYRA [Suspect]
     Active Substance: DALFAMPRIDINE
     Indication: MULTIPLE SCLEROSIS
     Route: 048
     Dates: start: 201006, end: 201303
  4. SIMVASTATIN. [Concomitant]
     Active Substance: SIMVASTATIN
  5. DETROL LA [Concomitant]
     Active Substance: TOLTERODINE TARTRATE
  6. MELOXICAM. [Concomitant]
     Active Substance: MELOXICAM
  7. BACLOFEN. [Concomitant]
     Active Substance: BACLOFEN
  8. HYDROMORPHONE [Concomitant]
     Active Substance: HYDROMORPHONE
  9. ALENDRONATE [Concomitant]
     Active Substance: ALENDRONATE SODIUM
  10. MORPHINE SULFATE ER [Concomitant]
     Active Substance: MORPHINE SULFATE
  11. GABAPENTIN. [Concomitant]
     Active Substance: GABAPENTIN
  12. METHYLPHENIDATE [Concomitant]
     Active Substance: METHYLPHENIDATE

REACTIONS (1)
  - Drug ineffective [None]

NARRATIVE: CASE EVENT DATE: 20130320
